FAERS Safety Report 21041948 (Version 2)
Quarter: 2022Q3

REPORT INFORMATION
  Report Type: Report from Study
  Country: CA (occurrence: CA)
  Receive Date: 20220705
  Receipt Date: 20220714
  Transmission Date: 20221027
  Serious: No
  Sender: FDA-Public Use
  Company Number: CA-NOVARTISPH-NVSC2022CA057206

PATIENT
  Sex: Female

DRUGS (3)
  1. ERELZI [Suspect]
     Active Substance: ETANERCEPT-SZZS
     Indication: Psoriatic arthropathy
     Dosage: 50 MG, QW
     Route: 058
     Dates: start: 20211213
  2. ERELZI [Suspect]
     Active Substance: ETANERCEPT-SZZS
     Dosage: UNK
     Route: 065
     Dates: end: 20220704
  3. ENBREL [Concomitant]
     Active Substance: ETANERCEPT
     Indication: Product used for unknown indication
     Dosage: 1 DOSAGE FORM, QW
     Route: 058
     Dates: end: 20211111

REACTIONS (10)
  - Arthritis [Not Recovered/Not Resolved]
  - Decreased appetite [Unknown]
  - Arthralgia [Unknown]
  - C-reactive protein increased [Unknown]
  - Joint swelling [Unknown]
  - Anxiety [Unknown]
  - Red blood cell sedimentation rate increased [Unknown]
  - Pruritus [Unknown]
  - Skin exfoliation [Unknown]
  - Drug ineffective [Unknown]
